FAERS Safety Report 5323122-X (Version None)
Quarter: 2007Q2

REPORT INFORMATION
  Report Type: 
  Country: None (occurrence: None)
  Receive Date: 20070220
  Receipt Date: 20061121
  Transmission Date: 20071010
  Serious: No
  Sender: FDA-Public Use
  Company Number: WAES 0611USA06460

PATIENT

DRUGS (1)
  1. JANUVIA [Suspect]

REACTIONS (1)
  - BLOOD GLUCOSE DECREASED [None]
